FAERS Safety Report 25377501 (Version 1)
Quarter: 2025Q2

REPORT INFORMATION
  Report Type: Spontaneous
  Country: SE (occurrence: SE)
  Receive Date: 20250530
  Receipt Date: 20250530
  Transmission Date: 20250717
  Serious: Yes (Other)
  Sender: ACCORD
  Company Number: None

PATIENT
  Age: 21 Year
  Sex: Female

DRUGS (2)
  1. SERTRALINE [Suspect]
     Active Substance: SERTRALINE HYDROCHLORIDE
     Indication: Product used for unknown indication
     Dates: end: 20250426
  2. AMITRIPTYLINE [Suspect]
     Active Substance: AMITRIPTYLINE
     Indication: Neuralgia
     Dates: start: 202504, end: 20250426

REACTIONS (7)
  - Chest pain [Unknown]
  - Dizziness [Unknown]
  - Mydriasis [Unknown]
  - Salivary hypersecretion [Unknown]
  - Feeling of body temperature change [Unknown]
  - Dry mouth [Unknown]
  - Tremor [Unknown]

NARRATIVE: CASE EVENT DATE: 20250420
